FAERS Safety Report 7484785-6 (Version None)
Quarter: 2011Q2

REPORT INFORMATION
  Report Type: 
  Country: None (occurrence: None)
  Receive Date: 20110517
  Receipt Date: 20090930
  Transmission Date: 20111010
  Serious: Yes (Other)
  Sender: FDA-Public Use
  Company Number: US-BAYER-2011-006406

PATIENT
  Age: 43 Year
  Sex: Female
  Weight: 49 kg

DRUGS (14)
  1. NITROGLYCERIN [Concomitant]
     Dosage: UNK
     Dates: start: 20060101
  2. HUMALOG [Concomitant]
     Route: 058
  3. PROCARDIA [Concomitant]
  4. LOPRESSOR [Concomitant]
     Dosage: UNK
     Dates: start: 20060101
  5. TRASYLOL [Suspect]
     Indication: CORONARY ARTERY BYPASS
     Dosage: TEST DOSE 1ML, LOADING DOSE 200ML, THEN 50CC/HR
     Route: 042
     Dates: start: 20060111, end: 20060111
  6. PROTONIX [Concomitant]
     Dosage: UNK
     Dates: start: 20060101
  7. HEPARIN [Concomitant]
     Dosage: UNK
     Dates: start: 20060111
  8. FENTANYL [Concomitant]
     Dosage: UNK
     Route: 042
     Dates: start: 20060111
  9. VANCOMYCIN [Concomitant]
     Dosage: UNK
     Dates: start: 20060101
  10. LISINOPRIL [Concomitant]
     Dosage: UNK
     Dates: start: 20060101
  11. INSULIN [INSULIN] [Concomitant]
     Dosage: UNK
     Dates: start: 20060101
  12. LANTUS [Concomitant]
     Dosage: UNK
     Dates: start: 20060101
  13. METOPROLOL SUCCINATE [Concomitant]
     Dosage: 25 MG, BID
     Route: 048
     Dates: start: 20060101
  14. PROTAMINE SULFATE [Concomitant]
     Dosage: UNK
     Route: 042
     Dates: start: 20060111, end: 20060111

REACTIONS (11)
  - MULTI-ORGAN FAILURE [None]
  - PAIN [None]
  - ANXIETY [None]
  - RENAL FAILURE [None]
  - DEPRESSION [None]
  - RENAL INJURY [None]
  - NERVOUSNESS [None]
  - UNEVALUABLE EVENT [None]
  - FEAR OF DEATH [None]
  - INJURY [None]
  - EMOTIONAL DISTRESS [None]
